FAERS Safety Report 7117935-1 (Version None)
Quarter: 2010Q4

REPORT INFORMATION
  Report Type: 
  Country: None (occurrence: None)
  Receive Date: 20101123
  Receipt Date: 20101115
  Transmission Date: 20110411
  Serious: Yes (Other)
  Sender: FDA-Public Use
  Company Number: US-US-EMD SERONO, INC.-232474J09USA

PATIENT
  Sex: Female
  Weight: 95 kg

DRUGS (12)
  1. REBIF [Suspect]
     Indication: MULTIPLE SCLEROSIS
     Route: 058
     Dates: start: 20090227
  2. CELEXA [Concomitant]
     Indication: BIPOLAR DISORDER
     Route: 065
  3. NEXIUM [Concomitant]
     Indication: GASTROOESOPHAGEAL REFLUX DISEASE
     Route: 065
  4. LISINOPRIL [Concomitant]
     Indication: HYPERTENSION
     Route: 065
  5. LISINOPRIL [Concomitant]
     Indication: RENAL DISORDER
  6. PROVIGIL [Concomitant]
     Indication: NARCOLEPSY
     Route: 065
  7. LIPITOR [Concomitant]
     Indication: BLOOD CHOLESTEROL INCREASED
     Route: 065
  8. LITHIUM [Concomitant]
     Indication: BIPOLAR DISORDER
     Route: 065
  9. AMBIEN [Concomitant]
     Indication: INSOMNIA
     Route: 065
  10. TOPAMAX [Concomitant]
     Indication: MIGRAINE PROPHYLAXIS
     Route: 065
  11. TRAZODONE [Concomitant]
     Indication: INSOMNIA
     Route: 065
  12. IBUPROFEN [Concomitant]
     Indication: PREMEDICATION
     Route: 065
     Dates: start: 20090101

REACTIONS (2)
  - DIABETES MELLITUS [None]
  - GALLBLADDER DISORDER [None]
